FAERS Safety Report 8814831 (Version 1)
Quarter: 2012Q4

REPORT INFORMATION
  Report Type: Spontaneous
  Country: DE (occurrence: None)
  Receive Date: 20120926
  Receipt Date: 20120926
  Transmission Date: 20130627
  Serious: Yes (Hospitalization, Congenital Anomaly, Other)
  Sender: FDA-Public Use
  Company Number: GER/GER/12/0025927

PATIENT
  Sex: Female
  Weight: 3.4 kg

DRUGS (5)
  1. LAMOTRIGINE (LAMOTRIGINE) [Suspect]
     Indication: DRUG USE FOR UNKNOWN INDICATION
     Route: 064
     Dates: start: 20110709, end: 20120321
  2. INFLUENZA VACCINE [Suspect]
     Indication: DRUG USE FOR UNKNOWN INDICATION
     Route: 064
  3. HUMALOG [Concomitant]
  4. FOLIC ACID [Concomitant]
  5. NOVORAPID [Concomitant]

REACTIONS (5)
  - Maternal drugs affecting foetus [None]
  - Gastroschisis [None]
  - Haemangioma [None]
  - Atrial septal defect [None]
  - Caesarean section [None]
